FAERS Safety Report 6301365-6 (Version None)
Quarter: 2009Q3

REPORT INFORMATION
  Report Type: 
  Country: None (occurrence: None)
  Receive Date: 20090807
  Receipt Date: 20090804
  Transmission Date: 20100115
  Serious: Yes (Death, Other)
  Sender: FDA-Public Use
  Company Number: US-BAXTER-2009BH011962

PATIENT
  Age: 56 Year
  Sex: Female

DRUGS (5)
  1. HEPARIN SODIUM 1,000 UNITS AND SODIUM CHLORIDE 0.9% [Suspect]
     Indication: DRUG USE FOR UNKNOWN INDICATION
     Route: 042
     Dates: start: 20090615
  2. INTEGRILIN [Suspect]
     Indication: CORONARY ARTERY DISEASE
     Route: 041
     Dates: start: 20090615, end: 20090616
  3. ANGIOMAX [Suspect]
     Indication: STENT PLACEMENT
     Route: 040
     Dates: start: 20090616, end: 20090616
  4. ANGIOMAX [Suspect]
     Route: 041
     Dates: start: 20080616, end: 20090619
  5. PLAVIX [Suspect]
     Indication: STENT PLACEMENT
     Route: 048
     Dates: start: 20090616, end: 20090619

REACTIONS (6)
  - CARDIO-RESPIRATORY ARREST [None]
  - CONVULSION [None]
  - HAEMOTHORAX [None]
  - PLEURAL EFFUSION [None]
  - RETROPERITONEAL HAEMORRHAGE [None]
  - UNRESPONSIVE TO STIMULI [None]
